FAERS Safety Report 8520976-0 (Version None)
Quarter: 2012Q3

REPORT INFORMATION
  Report Type: 
  Country: None (occurrence: None)
  Receive Date: 20120712
  Receipt Date: 20120712
  Transmission Date: 20120928
  Serious: Yes (Other)
  Sender: FDA-Public Use
  Company Number: None

PATIENT
  Sex: Female

DRUGS (1)
  1. PANTOPRAZOLE [Suspect]
     Indication: ANTACID THERAPY
     Dosage: 40MG ONCE A DAY PO   ONCE
     Route: 048

REACTIONS (3)
  - DYSPNOEA [None]
  - DIZZINESS [None]
  - HEADACHE [None]
